FAERS Safety Report 5504731-1 (Version None)
Quarter: 2007Q4

REPORT INFORMATION
  Report Type: 
  Country: None (occurrence: None)
  Receive Date: 20071031
  Receipt Date: 20071023
  Transmission Date: 20080405
  Serious: Yes (Death)
  Sender: FDA-Public Use
  Company Number: B0492651A

PATIENT
  Sex: 0

DRUGS (9)
  1. ALKERAN [Suspect]
     Indication: MULTIPLE MYELOMA
     Dosage: ORAL
     Route: 048
  2. VINCRISTINE [Suspect]
     Indication: MULTIPLE MYELOMA
     Dosage: INTRAVENOUS INFUS
     Route: 042
  3. DOXORUBICIN HCL [Suspect]
     Indication: MULTIPLE MYELOMA
     Dosage: INTRAVENOUS INFUS
     Route: 042
  4. DEXAMETHASONE [Suspect]
     Indication: MULTIPLE MYELOMA
     Dosage: ORAL
     Route: 048
  5. STEM CELL TRANSPLANT (FORMULATION UNKNOWN) (STEM CELL TRANSPLANT) [Suspect]
  6. CYCLOPHOSPHAMIDE [Suspect]
     Indication: STEM CELL TRANSPLANT
  7. MESNA [Suspect]
     Indication: STEM CELL TRANSPLANT
  8. GRANULOCYTE COL.STIM.FACT (FORMULATION UNKNOWN) (GRANULOCYTE COL.STIM. [Suspect]
  9. DISODIUM CLODRONATE (FORMULATION UNKNOWN) (DISODIUM CLODRONATE) [Suspect]
     Dosage: ORAL
     Route: 048

REACTIONS (1)
  - DRUG TOXICITY [None]
